FAERS Safety Report 12337863 (Version 1)
Quarter: 2016Q2

REPORT INFORMATION
  Report Type: Spontaneous
  Country: US (occurrence: US)
  Receive Date: 20160505
  Receipt Date: 20160505
  Transmission Date: 20160815
  Serious: Yes (Other)
  Sender: FDA-Public Use
  Company Number: US-JNJFOC-20160500209

PATIENT
  Sex: Female

DRUGS (9)
  1. AMARYL [Concomitant]
     Active Substance: GLIMEPIRIDE
     Route: 048
  2. KENALOG [Concomitant]
     Active Substance: TRIAMCINOLONE ACETONIDE
     Dosage: DOSE: 1 ML TO BE INJECTED WITHIN A MUSCLE ONE TIME.
     Route: 050
  3. INVOKANA [Suspect]
     Active Substance: CANAGLIFLOZIN
     Indication: TYPE 2 DIABETES MELLITUS
     Route: 048
  4. ORETIC [Concomitant]
     Active Substance: HYDROCHLOROTHIAZIDE
     Route: 048
  5. METFORMIN HCL [Concomitant]
     Active Substance: METFORMIN HYDROCHLORIDE
     Route: 048
  6. PRINIVIL [Concomitant]
     Active Substance: LISINOPRIL
     Route: 048
  7. ATROVENT [Concomitant]
     Active Substance: IPRATROPIUM BROMIDE
     Dosage: DOSE: 18 MCG/ ACT, 2 PUFFS
     Route: 055
  8. ZESTRIL [Concomitant]
     Active Substance: LISINOPRIL
     Route: 048
  9. ZOCOR [Concomitant]
     Active Substance: SIMVASTATIN
     Route: 048

REACTIONS (2)
  - Cardiac flutter [Unknown]
  - Weight decreased [Unknown]
